FAERS Safety Report 8071742-4 (Version None)
Quarter: 2012Q1

REPORT INFORMATION
  Report Type: 
  Country: None (occurrence: None)
  Receive Date: 20120125
  Receipt Date: 20120119
  Transmission Date: 20120608
  Serious: Yes (Hospitalization, Other)
  Sender: FDA-Public Use
  Company Number: US-MERCK-1104USA02660

PATIENT
  Age: 66 Year
  Sex: Female
  Weight: 77 kg

DRUGS (6)
  1. FOSAMAX [Suspect]
     Route: 048
  2. FOSAMAX [Suspect]
     Indication: OSTEOPENIA
     Route: 048
     Dates: start: 20031201, end: 20060101
  3. FOSAMAX [Suspect]
     Route: 048
     Dates: start: 20090701, end: 20100106
  4. FOSAMAX PLUS D [Suspect]
     Route: 048
     Dates: start: 20070501, end: 20090601
  5. VITAMIN E [Concomitant]
     Route: 065
     Dates: start: 20000401, end: 20090501
  6. FOSAMAX PLUS D [Suspect]
     Indication: OSTEOPENIA
     Route: 048
     Dates: start: 20070501, end: 20090601

REACTIONS (33)
  - ANXIETY [None]
  - FALL [None]
  - OSTEOPOROSIS [None]
  - CARDIAC MURMUR [None]
  - VULVA CYST [None]
  - BACK PAIN [None]
  - DEEP VEIN THROMBOSIS [None]
  - DEVICE FAILURE [None]
  - GASTROENTERITIS [None]
  - LOW TURNOVER OSTEOPATHY [None]
  - FEMUR FRACTURE [None]
  - MELANOCYTIC NAEVUS [None]
  - OSTEOARTHRITIS [None]
  - FRACTURE DELAYED UNION [None]
  - FEELING JITTERY [None]
  - CERVICOBRACHIAL SYNDROME [None]
  - MALIGNANT MELANOMA [None]
  - SENSATION OF FOREIGN BODY [None]
  - INSOMNIA [None]
  - HYPERGLYCAEMIA [None]
  - MACULAR DEGENERATION [None]
  - TOOTH LOSS [None]
  - HYPERHIDROSIS [None]
  - STRESS URINARY INCONTINENCE [None]
  - HYPERCHOLESTEROLAEMIA [None]
  - NASAL CONGESTION [None]
  - TOOTH DISORDER [None]
  - ADVERSE EVENT [None]
  - HYPOTHYROIDISM [None]
  - MENISCUS LESION [None]
  - DEPRESSION [None]
  - LIPOMA [None]
  - UPPER-AIRWAY COUGH SYNDROME [None]
